FAERS Safety Report 5278482-5 (Version None)
Quarter: 2007Q1

REPORT INFORMATION
  Report Type: 
  Country: None (occurrence: None)
  Receive Date: 20070328
  Receipt Date: 20070314
  Transmission Date: 20070707
  Serious: Yes (Hospitalization)
  Sender: FDA-Public Use
  Company Number: US-AMGEN-STX214997

PATIENT
  Sex: Male

DRUGS (6)
  1. ENBREL [Suspect]
     Indication: RHEUMATOID ARTHRITIS
     Route: 058
     Dates: start: 20060301
  2. PREDNISONE [Suspect]
     Dates: start: 20050101
  3. METHOTREXATE [Concomitant]
     Route: 048
     Dates: start: 20050101
  4. DOLOBID [Concomitant]
     Dates: start: 20050101
  5. FOLIC ACID [Concomitant]
     Dates: start: 20050101
  6. NEURONTIN [Concomitant]
     Dates: start: 20060101

REACTIONS (2)
  - LIPOMATOSIS [None]
  - OSTEOARTHRITIS [None]
